FAERS Safety Report 10236924 (Version 3)
Quarter: 2014Q4

REPORT INFORMATION
  Report Type: Spontaneous
  Country: CN (occurrence: CN)
  Receive Date: 20140613
  Receipt Date: 20141022
  Transmission Date: 20150528
  Serious: Yes (Other)
  Sender: FDA-Public Use
  Company Number: PHHY2014CN071062

PATIENT
  Age: 23 Year
  Sex: Female

DRUGS (3)
  1. TEGRETOL [Suspect]
     Active Substance: CARBAMAZEPINE
     Dosage: UNK
     Route: 048
     Dates: end: 20140623
  2. TEGRETOL [Suspect]
     Active Substance: CARBAMAZEPINE
     Dosage: 4 DF, EVERY DAY
     Route: 048
  3. TEGRETOL [Suspect]
     Active Substance: CARBAMAZEPINE
     Indication: EPILEPSY
     Dosage: 200 MG PER DAY
     Route: 048
     Dates: start: 20020601

REACTIONS (6)
  - Drug dependence [Unknown]
  - Piloerection [Unknown]
  - Swelling [Unknown]
  - Agitation [Unknown]
  - Leukocytosis [Unknown]
  - Dizziness [Unknown]

NARRATIVE: CASE EVENT DATE: 20140623
